FAERS Safety Report 10678593 (Version 2)
Quarter: 2015Q2

REPORT INFORMATION
  Report Type: Spontaneous
  Country: IT (occurrence: IT)
  Receive Date: 20141229
  Receipt Date: 20150429
  Transmission Date: 20150821
  Serious: Yes (Other)
  Sender: FDA-Public Use
  Company Number: IT-OTSUKA-US-2014-14624

PATIENT

DRUGS (1)
  1. DACOGEN [Suspect]
     Active Substance: DECITABINE
     Indication: CHRONIC MYELOMONOCYTIC LEUKAEMIA
     Dosage: 20 MG/M2, DAILY DOSE, 5 DAYS, 6 CYCLES
     Route: 042

REACTIONS (2)
  - Cardiotoxicity [Unknown]
  - Gastrointestinal toxicity [Unknown]
